FAERS Safety Report 21453548 (Version 1)
Quarter: 2022Q4

REPORT INFORMATION
  Report Type: Spontaneous
  Country: US (occurrence: US)
  Receive Date: 20221013
  Receipt Date: 20221013
  Transmission Date: 20230113
  Serious: No
  Sender: FDA-Public Use
  Company Number: US-BRACCO-2022US04288

PATIENT

DRUGS (2)
  1. CARDIOGEN-82 [Suspect]
     Active Substance: RUBIDIUM CHLORIDE RB-82
     Indication: Diagnostic procedure
     Dosage: UNK
     Dates: start: 20220922, end: 20220922
  2. DEXTROSE [Concomitant]
     Active Substance: DEXTROSE
     Indication: Diagnostic procedure
     Dosage: UNK
     Dates: start: 20220922, end: 20220922

REACTIONS (3)
  - Product preparation error [Unknown]
  - Intercepted product administration error [Unknown]
  - No adverse event [Unknown]

NARRATIVE: CASE EVENT DATE: 20220922
